FAERS Safety Report 10473898 (Version 2)
Quarter: 2015Q2

REPORT INFORMATION
  Report Type: Report from Study
  Country: PL (occurrence: PL)
  Receive Date: 20140924
  Receipt Date: 20150430
  Transmission Date: 20150821
  Serious: Yes (Hospitalization, Other)
  Sender: FDA-Public Use
  Company Number: PL-JNJFOC-20140909525

PATIENT
  Age: 65 Year
  Sex: Female
  Weight: 95 kg

DRUGS (30)
  1. RIVAROXABAN [Suspect]
     Active Substance: RIVAROXABAN
     Indication: CEREBROVASCULAR ACCIDENT PROPHYLAXIS
     Route: 048
     Dates: start: 20140815, end: 20140910
  2. RAMIPRIL. [Concomitant]
     Active Substance: RAMIPRIL
     Indication: MYOCARDIAL INFARCTION
     Dosage: IN EVENING
     Route: 048
     Dates: start: 20140812
  3. RAMIPRIL. [Concomitant]
     Active Substance: RAMIPRIL
     Indication: HYPERTENSION
     Dosage: IN EVENING
     Route: 048
     Dates: start: 20140812
  4. CARVEDILOL. [Concomitant]
     Active Substance: CARVEDILOL
     Indication: MYOCARDIAL INFARCTION
     Route: 048
     Dates: start: 20140814, end: 20140817
  5. CARVEDILOL. [Concomitant]
     Active Substance: CARVEDILOL
     Indication: MYOCARDIAL INFARCTION
     Route: 048
     Dates: start: 20140818, end: 20140819
  6. CEFUROXIME. [Concomitant]
     Active Substance: CEFUROXIME
     Indication: HAEMATOMA
     Route: 042
     Dates: start: 20140819, end: 20140825
  7. POTASSIUM CHLORIDE. [Concomitant]
     Active Substance: POTASSIUM CHLORIDE
     Indication: HYPOKALAEMIA
     Route: 048
     Dates: start: 20140821
  8. METFORMAX [Concomitant]
     Active Substance: METFORMIN HYDROCHLORIDE
     Indication: DIABETES MELLITUS
     Route: 048
     Dates: start: 20140813
  9. RIVAROXABAN [Suspect]
     Active Substance: RIVAROXABAN
     Indication: ATRIAL FIBRILLATION
     Route: 048
     Dates: start: 20140815, end: 20140910
  10. CLORANXEN [Concomitant]
     Indication: ANXIETY
     Dosage: EVERY EVENING
     Route: 048
     Dates: start: 20140816
  11. CARVEDILOL. [Concomitant]
     Active Substance: CARVEDILOL
     Indication: ATRIAL FIBRILLATION
     Route: 048
     Dates: start: 20140812, end: 20140814
  12. EPLERENONE. [Concomitant]
     Active Substance: EPLERENONE
     Indication: MYOCARDIAL INFARCTION
     Dosage: IN THE MORNING
     Route: 048
     Dates: start: 20140812
  13. ASA [Concomitant]
     Active Substance: ASPIRIN
     Indication: MYOCARDIAL INFARCTION
     Route: 065
     Dates: start: 20140812, end: 20140813
  14. CARVEDILOL. [Concomitant]
     Active Substance: CARVEDILOL
     Indication: ATRIAL FIBRILLATION
     Route: 048
     Dates: start: 20140819
  15. POTASSIUM CHLORIDE. [Concomitant]
     Active Substance: POTASSIUM CHLORIDE
     Indication: HYPOKALAEMIA
     Route: 048
     Dates: start: 20140815, end: 20140818
  16. POTASSIUM CHLORIDE. [Concomitant]
     Active Substance: POTASSIUM CHLORIDE
     Indication: HYPOKALAEMIA
     Route: 048
     Dates: start: 20140819, end: 20140820
  17. ENOXAPARIN SODIUM. [Concomitant]
     Active Substance: ENOXAPARIN SODIUM
     Indication: ATRIAL FIBRILLATION
     Route: 058
     Dates: start: 20140812, end: 20140814
  18. EPLERENONE. [Concomitant]
     Active Substance: EPLERENONE
     Indication: CARDIAC FAILURE
     Dosage: IN THE MORNING
     Route: 048
     Dates: start: 20140812
  19. SPIRONOLACTONE. [Concomitant]
     Active Substance: SPIRONOLACTONE
     Indication: CARDIAC FAILURE
     Dosage: EVERY EVENING
     Route: 048
     Dates: start: 20140816, end: 20140817
  20. PANTOPRAZOLE [Concomitant]
     Active Substance: PANTOPRAZOLE SODIUM
     Indication: PROPHYLAXIS
     Dosage: IN THE MORNING
     Route: 048
     Dates: start: 20140815
  21. ATORVASTEROL [Concomitant]
     Indication: MYOCARDIAL INFARCTION
     Dosage: IN EVENING
     Route: 048
     Dates: start: 20140812
  22. CARVEDILOL. [Concomitant]
     Active Substance: CARVEDILOL
     Indication: ATRIAL FIBRILLATION
     Route: 048
     Dates: start: 20140814, end: 20140817
  23. FUROSEMIDE. [Concomitant]
     Active Substance: FUROSEMIDE
     Indication: CARDIAC FAILURE
     Route: 048
     Dates: start: 20140812, end: 20140814
  24. CEFUROXIME. [Concomitant]
     Active Substance: CEFUROXIME
     Indication: HAEMATOMA
     Route: 042
     Dates: start: 20140814, end: 20140818
  25. ATORVASTEROL [Concomitant]
     Indication: HYPERLIPIDAEMIA
     Dosage: IN EVENING
     Route: 048
     Dates: start: 20140812
  26. CARVEDILOL. [Concomitant]
     Active Substance: CARVEDILOL
     Indication: ATRIAL FIBRILLATION
     Route: 048
     Dates: start: 20140818, end: 20140819
  27. CARVEDILOL. [Concomitant]
     Active Substance: CARVEDILOL
     Indication: MYOCARDIAL INFARCTION
     Route: 048
     Dates: start: 20140812, end: 20140814
  28. CARVEDILOL. [Concomitant]
     Active Substance: CARVEDILOL
     Indication: MYOCARDIAL INFARCTION
     Route: 048
     Dates: start: 20140819
  29. ASA [Concomitant]
     Active Substance: ASPIRIN
     Indication: ANTIPLATELET THERAPY
     Route: 065
     Dates: start: 20140812, end: 20140813
  30. CLOPIDOGREL [Concomitant]
     Active Substance: CLOPIDOGREL BISULFATE
     Indication: ANTIPLATELET THERAPY
     Route: 065
     Dates: start: 20140812, end: 20150224

REACTIONS (1)
  - Renal failure [Recovered/Resolved]

NARRATIVE: CASE EVENT DATE: 20140911
